FAERS Safety Report 8180167-2 (Version None)
Quarter: 2012Q1

REPORT INFORMATION
  Report Type: 
  Country: None (occurrence: None)
  Receive Date: 20120229
  Receipt Date: 20120203
  Transmission Date: 20120608
  Serious: Yes (Hospitalization)
  Sender: FDA-Public Use
  Company Number: 2012PROUSA00937

PATIENT
  Age: 81 Year
  Sex: Male
  Weight: 105.5 kg

DRUGS (10)
  1. LORTAB [Concomitant]
  2. PROVENGE [Suspect]
     Indication: PROSTATE CANCER METASTATIC
     Dosage: 250 ML, SINGLE, INTRAVENOUS, 250 ML, SINGLE, INTRAVENOUS
     Route: 042
     Dates: start: 20111222, end: 20111222
  3. PROVENGE [Suspect]
     Indication: PROSTATE CANCER METASTATIC
     Dosage: 250 ML, SINGLE, INTRAVENOUS, 250 ML, SINGLE, INTRAVENOUS
     Route: 042
     Dates: start: 20111208, end: 20111208
  4. OMEPRAZOLE [Concomitant]
  5. ZANTAC [Concomitant]
  6. TRAMADOL HCL [Concomitant]
  7. PROVENGE [Suspect]
  8. DOXEPIN HCL [Concomitant]
  9. ROPINIROLE [Concomitant]
  10. CYMBALTA [Concomitant]

REACTIONS (7)
  - STAPHYLOCOCCAL INFECTION [None]
  - JUGULAR VEIN THROMBOSIS [None]
  - PRODUCT CONTAMINATION MICROBIAL [None]
  - HAEMOPTYSIS [None]
  - LEFT VENTRICULAR HYPERTROPHY [None]
  - PULMONARY EMBOLISM [None]
  - PLEURAL EFFUSION [None]
